FAERS Safety Report 6765565-3 (Version None)
Quarter: 2010Q2

REPORT INFORMATION
  Report Type: 
  Country: None (occurrence: None)
  Receive Date: 20100611
  Receipt Date: 20100608
  Transmission Date: 20101027
  Serious: Yes (Death, Hospitalization)
  Sender: FDA-Public Use
  Company Number: PHHY2010BR37053

PATIENT
  Sex: Female

DRUGS (6)
  1. EXELON [Suspect]
     Indication: DEMENTIA ALZHEIMER'S TYPE
     Dosage: 4.5 MG, BID
     Route: 048
     Dates: start: 20030101
  2. ALOIS [Concomitant]
     Dosage: 10 MG, 2 TABLETS PER DAY
     Route: 048
     Dates: start: 20030101
  3. ATENOL [Concomitant]
     Indication: HYPERTENSION
     Dosage: 100 MG, 2 TABLETS DAILY
     Route: 048
  4. LOSARTAN POTASSIUM [Concomitant]
     Indication: HYPERTENSION
     Dosage: 1 TABLET DAILY
  5. METFORMIN [Concomitant]
     Indication: TYPE 2 DIABETES MELLITUS
     Dosage: 500 MG, 2 TABLETS PER DAY
  6. SERTRALINE HCL [Concomitant]
     Indication: DEPRESSION
     Dosage: 50 MG, 1 TABLET DAILY
     Route: 048

REACTIONS (3)
  - CEREBRAL HAEMORRHAGE [None]
  - FALL [None]
  - HEAD INJURY [None]
